FAERS Safety Report 19960808 (Version 8)
Quarter: 2022Q2

REPORT INFORMATION
  Report Type: Report from Study
  Country: US (occurrence: US)
  Receive Date: 20211016
  Receipt Date: 20220615
  Transmission Date: 20220721
  Serious: Yes (Other)
  Sender: FDA-Public Use
  Company Number: US-NOVARTISPH-NVSC2021US235195

PATIENT
  Age: 67 Year
  Sex: Female

DRUGS (2)
  1. ENTRESTO [Suspect]
     Active Substance: SACUBITRIL\VALSARTAN
     Indication: Product used for unknown indication
     Dosage: 1 DF (24/26MG), BID
     Route: 048
  2. ENTRESTO [Suspect]
     Active Substance: SACUBITRIL\VALSARTAN
     Dosage: 1 DF (49/51MG), BID
     Route: 048
     Dates: start: 202107

REACTIONS (8)
  - Atrial fibrillation [Recovering/Resolving]
  - Dyspnoea [Recovering/Resolving]
  - Impaired fasting glucose [Recovering/Resolving]
  - Fatigue [Recovering/Resolving]
  - Hypotension [Unknown]
  - Product dose omission issue [Unknown]
  - Chest discomfort [Unknown]
  - Depressed mood [Unknown]

NARRATIVE: CASE EVENT DATE: 20220501
